FAERS Safety Report 9576973 (Version 1)
Quarter: 2013Q4

REPORT INFORMATION
  Report Type: Spontaneous
  Country: US (occurrence: US)
  Receive Date: 20131001
  Receipt Date: 20131001
  Transmission Date: 20140711
  Serious: No
  Sender: FDA-Public Use
  Company Number: US-AMGEN-USASP2013005467

PATIENT
  Sex: Female
  Weight: 58.96 kg

DRUGS (10)
  1. ENBREL [Suspect]
     Indication: RHEUMATOID ARTHRITIS
     Dosage: 50 MG, QWK
     Route: 058
     Dates: start: 2008
  2. METHOTREXATE [Concomitant]
     Indication: RHEUMATOID ARTHRITIS
     Dosage: 1 G, UNK
  3. SYNTHYROID [Concomitant]
     Dosage: 150 MUG, UNK
  4. VITAMIN B-6 [Concomitant]
     Dosage: 100 MG, UNK
  5. ZANTAC 75 DISSOLVE [Concomitant]
     Dosage: UNK
  6. ORUDIS KT [Concomitant]
     Dosage: 12.5 MG, UNK
  7. VITAMIN B-12 [Concomitant]
     Dosage: 1000 CR,UNK
  8. FISH OIL [Concomitant]
     Dosage: UNK
  9. CALCIUM [Concomitant]
     Dosage: 500 UNK, UNK
  10. FOLIC ACID [Concomitant]
     Dosage: UNK

REACTIONS (6)
  - Fatigue [Unknown]
  - Arthropathy [Unknown]
  - Musculoskeletal stiffness [Unknown]
  - Musculoskeletal discomfort [Unknown]
  - Injection site haemorrhage [Unknown]
  - Injection site swelling [Unknown]
